FAERS Safety Report 20220095 (Version 2)
Quarter: 2022Q2

REPORT INFORMATION
  Report Type: Report from Study
  Country: BR (occurrence: BR)
  Receive Date: 20211222
  Receipt Date: 20220613
  Transmission Date: 20220721
  Serious: Yes (Hospitalization)
  Sender: FDA-Public Use
  Company Number: BR-JNJFOC-20211243099

PATIENT
  Sex: Female

DRUGS (2)
  1. SIMPONI [Suspect]
     Active Substance: GOLIMUMAB
     Indication: Product used for unknown indication
     Route: 058
  2. RADIATION THERAPY [Suspect]
     Active Substance: RADIATION THERAPY
     Route: 065

REACTIONS (3)
  - Pneumonia [Unknown]
  - Lung neoplasm malignant [Unknown]
  - Diverticulitis [Unknown]
